FAERS Safety Report 10188239 (Version 2)
Quarter: 2014Q2

REPORT INFORMATION
  Report Type: Spontaneous
  Country: US (occurrence: US)
  Receive Date: 20140522
  Receipt Date: 20140620
  Transmission Date: 20141212
  Serious: Yes (Death)
  Sender: FDA-Public Use
  Company Number: US-PFIZER INC-2014140948

PATIENT
  Sex: 0

DRUGS (1)
  1. INLYTA [Suspect]
     Dosage: UNK

REACTIONS (2)
  - Death [Fatal]
  - Nausea [Unknown]
